FAERS Safety Report 16053362 (Version 1)
Quarter: 2019Q1

REPORT INFORMATION
  Report Type: Spontaneous
  Country: HR (occurrence: HR)
  Receive Date: 20190308
  Receipt Date: 20190308
  Transmission Date: 20190418
  Serious: Yes (Other)
  Sender: FDA-Public Use
  Company Number: HR-009507513-1902HRV006640

PATIENT
  Age: 58 Year
  Sex: Male

DRUGS (2)
  1. KEYTRUDA [Suspect]
     Active Substance: PEMBROLIZUMAB
     Indication: LUNG NEOPLASM MALIGNANT
  2. KEYTRUDA [Suspect]
     Active Substance: PEMBROLIZUMAB
     Indication: NON-SMALL CELL LUNG CANCER
     Dosage: 150 MILLIGRAM PER, 2MG/KG, CYCLE
     Dates: start: 20180705, end: 20181108

REACTIONS (6)
  - Blood creatine increased [Unknown]
  - Blood creatine phosphokinase increased [Unknown]
  - Myositis [Unknown]
  - Hypothyroidism [Unknown]
  - Hyperkalaemia [Unknown]
  - Product use issue [Unknown]

NARRATIVE: CASE EVENT DATE: 20181130
